FAERS Safety Report 6477064-7 (Version None)
Quarter: 2009Q4

REPORT INFORMATION
  Report Type: 
  Country: None (occurrence: None)
  Receive Date: 20091207
  Receipt Date: 20091123
  Transmission Date: 20100525
  Serious: Yes (Other)
  Sender: FDA-Public Use
  Company Number: US-ELI_LILLY_AND_COMPANY-US200908003984

PATIENT
  Sex: Female

DRUGS (10)
  1. CYMBALTA [Suspect]
     Indication: DEPRESSION
     Dosage: 60 MG, UNK
     Dates: start: 20070101
  2. CYMBALTA [Suspect]
     Dosage: 30 MG, UNK
     Dates: start: 20090101
  3. CYMBALTA [Suspect]
     Dosage: 30 MG, QOD
     Dates: start: 20090101, end: 20090815
  4. METFORMIN HCL [Concomitant]
     Indication: POLYCYSTIC OVARIES
  5. HYDROCHLOROTHIAZIDE [Concomitant]
  6. METOPROLOL [Concomitant]
  7. VITAMIN D [Concomitant]
  8. ASCORBIC ACID [Concomitant]
  9. FISH OIL [Concomitant]
  10. CRANBERRY [Concomitant]

REACTIONS (12)
  - ABORTION MISSED [None]
  - ARTHRALGIA [None]
  - DEPRESSED MOOD [None]
  - DRUG EXPOSURE DURING PREGNANCY [None]
  - DRUG WITHDRAWAL SYNDROME [None]
  - EATING DISORDER [None]
  - FEELING ABNORMAL [None]
  - GENERAL SYMPTOM [None]
  - HEADACHE [None]
  - INFLUENZA LIKE ILLNESS [None]
  - NAUSEA [None]
  - PREGNANCY [None]
